FAERS Safety Report 25261824 (Version 1)
Quarter: 2025Q2

REPORT INFORMATION
  Report Type: Spontaneous
  Country: US (occurrence: US)
  Receive Date: 20250502
  Receipt Date: 20250502
  Transmission Date: 20250716
  Serious: Yes (Other)
  Sender: NOVARTIS
  Company Number: US-002147023-NVSC2025US067458

PATIENT
  Sex: Female

DRUGS (9)
  1. KISQALI [Suspect]
     Active Substance: RIBOCICLIB SUCCINATE
     Indication: Product used for unknown indication
     Route: 065
     Dates: start: 20240624, end: 20240807
  2. IBRANCE [Suspect]
     Active Substance: PALBOCICLIB
     Indication: Breast cancer metastatic
     Dosage: 1 DOSAGE FORM, QD (DAYS 1 TO 21, FOLLOWED BY 7 DAYS OF REST, REPEATED EVERY 28 DAYS)
     Route: 048
  3. IBRANCE [Suspect]
     Active Substance: PALBOCICLIB
     Dosage: 75 MG, QD (DAYS 1 TO 21, FOLLOWED BY 7 DAYS OF REST, REPEATED EVER)
     Route: 048
  4. ARIMIDEX [Concomitant]
     Active Substance: ANASTROZOLE
     Indication: Product used for unknown indication
     Route: 065
  5. VITAMIN D [Concomitant]
     Active Substance: VITAMIN D NOS
     Indication: Product used for unknown indication
     Route: 065
  6. LORAZEPAM [Concomitant]
     Active Substance: LORAZEPAM
     Indication: Product used for unknown indication
     Route: 065
  7. BUSPAR [Concomitant]
     Active Substance: BUSPIRONE HYDROCHLORIDE
     Indication: Product used for unknown indication
     Route: 065
  8. COMPAZINE [Concomitant]
     Active Substance: PROCHLORPERAZINE MALEATE
     Indication: Product used for unknown indication
     Route: 065
  9. BENADRYL ALLERGY [Concomitant]
     Active Substance: DIPHENHYDRAMINE HYDROCHLORIDE
     Indication: Product used for unknown indication
     Route: 065

REACTIONS (18)
  - Neoplasm malignant [Unknown]
  - Hypothermia [Unknown]
  - Carbohydrate antigen 15-3 increased [Unknown]
  - Oral discomfort [Unknown]
  - Stomatitis [Unknown]
  - Skin exfoliation [Unknown]
  - Lip pain [Unknown]
  - Insomnia [Unknown]
  - Eyelids pruritus [Unknown]
  - Epistaxis [Unknown]
  - Rhinalgia [Unknown]
  - Irritability [Unknown]
  - Hepatic enzyme increased [Unknown]
  - Fatigue [Unknown]
  - Blood potassium decreased [Unknown]
  - Diarrhoea [Unknown]
  - Vertigo [Unknown]
  - Blood bilirubin increased [Unknown]
